FAERS Safety Report 8935454 (Version 5)
Quarter: 2013Q1

REPORT INFORMATION
  Report Type: Spontaneous
  Country: DE (occurrence: None)
  Receive Date: 20121121
  Receipt Date: 20130111
  Transmission Date: 20140127
  Serious: Yes (Other)
  Sender: FDA-Public Use
  Company Number: AUR-APL-2012-04896

PATIENT
  Age: 59 Year
  Sex: Female

DRUGS (6)
  1. RAMIPRIL (RAMIPRIL) [Suspect]
     Indication: PRODUCT USED FOR UNKNOWN INDICATION
     Dosage: (5 MG, 1 D)
     Route: 048
  2. MIRTAZAPINE (MIRTAZAPINE) [Suspect]
     Indication: PRODUCT USED FOR UNKNOWN INDICATION
     Dosage: (15 MG, 1 D)
     Route: 048
  3. HYDROCHLOROTHIAZIDE (HYDROCHLOROTHIAZIDE) [Suspect]
     Indication: PRODUCT USED FOR UNKNOWN INDICATION
     Dosage: (25 MG, 1 D)
     Route: 048
     Dates: end: 20120621
  4. OXCARBAZEPINE [Suspect]
     Indication: PRODUCT USED FOR UNKNOWN INDICATION
     Dosage: 900 MG (300 MG, 3 IN 1 D),ORAL
     Dates: start: 20120526, end: 20120621
  5. CARVEDILOL (CARVEDILOL) [Concomitant]
  6. TEMGESIC (BUPRENORPHINE) [Concomitant]

REACTIONS (3)
  - Hyponatraemia [None]
  - Inappropriate antidiuretic hormone secretion [None]
  - Dizziness [None]
